FAERS Safety Report 24635804 (Version 1)
Quarter: 2024Q4

REPORT INFORMATION
  Report Type: Spontaneous
  Country: IN (occurrence: IN)
  Receive Date: 20241119
  Receipt Date: 20241119
  Transmission Date: 20250115
  Serious: Yes (Hospitalization, Other)
  Sender: ZYDUS PHARM
  Company Number: IN-CADILA HEALTHCARE LIMITED-IN-ZYDUS-114742

PATIENT

DRUGS (2)
  1. AZATHIOPRINE [Suspect]
     Active Substance: AZATHIOPRINE
     Indication: Colitis ulcerative
     Dosage: 75 MILLIGRAM, QD
     Route: 065
  2. MESALAMINE [Concomitant]
     Active Substance: MESALAMINE
     Indication: Colitis ulcerative
     Dosage: 4.8 GRAM,  DELAYED-RELEASE FORMULATION
     Route: 065

REACTIONS (1)
  - Ludwig angina [Recovered/Resolved]
